FAERS Safety Report 8047643-4 (Version None)
Quarter: 2012Q1

REPORT INFORMATION
  Report Type: 
  Country: None (occurrence: None)
  Receive Date: 20120116
  Receipt Date: 20120111
  Transmission Date: 20120608
  Serious: Yes (Other)
  Sender: FDA-Public Use
  Company Number: JP-GLAXOSMITHKLINE-B0775031A

PATIENT
  Age: 9 Decade
  Sex: Male

DRUGS (2)
  1. CABERGOLINE [Concomitant]
     Route: 048
  2. REQUIP [Suspect]
     Indication: PRODUCT USED FOR UNKNOWN INDICATION
     Route: 048

REACTIONS (2)
  - PLEURAL EFFUSION [None]
  - PLEURISY [None]
